FAERS Safety Report 5259652-9 (Version None)
Quarter: 2007Q1

REPORT INFORMATION
  Report Type: 
  Country: None (occurrence: None)
  Receive Date: 20070309
  Receipt Date: 20070305
  Transmission Date: 20070707
  Serious: Yes (Life-Threatening, Hospitalization)
  Sender: FDA-Public Use
  Company Number: BE-BAYER-200711053GDS

PATIENT
  Age: 74 Year
  Sex: Male
  Weight: 78 kg

DRUGS (19)
  1. SORAFENIB [Suspect]
     Indication: PROSTATE CANCER
     Route: 048
     Dates: start: 20070210
  2. TAXOTERE [Suspect]
     Indication: PROSTATE CANCER
     Route: 042
     Dates: start: 20070209, end: 20070209
  3. ASAFLOW [Concomitant]
     Indication: CARDIAC DISORDER
     Route: 048
     Dates: start: 20021001
  4. CORUNO [Concomitant]
     Indication: CARDIAC DISORDER
     Route: 048
     Dates: start: 20060101
  5. SINTROM [Concomitant]
     Indication: CARDIAC DISORDER
     Route: 048
     Dates: start: 20001001, end: 20070216
  6. ZOCOR [Concomitant]
     Indication: HYPERLIPIDAEMIA
     Route: 048
     Dates: start: 20000101
  7. CAPOTEN [Concomitant]
     Indication: HYPERTENSION
     Route: 048
     Dates: start: 20001001
  8. ISOTEN [Concomitant]
     Indication: HYPERTENSION
     Route: 048
     Dates: start: 20000101
  9. LASIX [Concomitant]
     Indication: CARDIAC FAILURE
     Route: 048
     Dates: start: 20020514
  10. FOSAMAX [Concomitant]
     Indication: OSTEOPOROSIS
     Route: 048
     Dates: start: 20060101
  11. CALCIUM [Concomitant]
     Indication: OSTEOPOROSIS
     Route: 048
     Dates: start: 20060101
  12. CORDARONE [Concomitant]
     Indication: CARDIAC DISORDER
     Route: 048
     Dates: start: 20001001
  13. MAXIPIME [Concomitant]
     Indication: SEPTIC SHOCK
     Route: 042
     Dates: start: 20070216
  14. AMUKIN [Concomitant]
     Indication: SEPTIC SHOCK
     Route: 042
     Dates: start: 20070216, end: 20070218
  15. DUOVENT [Concomitant]
     Indication: RESPIRATORY DISTRESS
     Route: 055
     Dates: start: 20070216
  16. PULMICORT [Concomitant]
     Indication: RESPIRATORY DISTRESS
     Route: 055
     Dates: start: 20070216
  17. SOLU-CORTEF [Concomitant]
     Indication: SEPTIC SHOCK
     Route: 042
     Dates: start: 20070216
  18. OXYGEN [Concomitant]
     Indication: OXYGEN SATURATION DECREASED
     Route: 055
     Dates: start: 20070216, end: 20070218
  19. CEFUROXIME [Concomitant]
     Indication: SEPTIC SHOCK
     Route: 048
     Dates: start: 20070224

REACTIONS (2)
  - FEBRILE NEUTROPENIA [None]
  - SEPTIC SHOCK [None]
